FAERS Safety Report 11083557 (Version 1)
Quarter: 2015Q2

REPORT INFORMATION
  Report Type: Report from Study
  Country: US (occurrence: US)
  Receive Date: 20150501
  Receipt Date: 20150501
  Transmission Date: 20150821
  Serious: Yes (Hospitalization)
  Sender: FDA-Public Use
  Company Number: US-BIOGENIDEC-2015BI056102

PATIENT
  Age: 51 Year
  Sex: Female

DRUGS (3)
  1. TYSABRI [Suspect]
     Active Substance: NATALIZUMAB
     Indication: MULTIPLE SCLEROSIS
     Route: 042
     Dates: start: 20111129, end: 20121015
  2. RESTORIL [Concomitant]
     Active Substance: TEMAZEPAM
  3. TYSABRI [Suspect]
     Active Substance: NATALIZUMAB
     Indication: MULTIPLE SCLEROSIS
     Route: 042
     Dates: start: 20141125

REACTIONS (8)
  - Panic reaction [Not Recovered/Not Resolved]
  - Hyperhidrosis [Recovered/Resolved]
  - Agoraphobia [Not Recovered/Not Resolved]
  - Road traffic accident [Recovered/Resolved]
  - General symptom [Not Recovered/Not Resolved]
  - Urinary tract infection [Recovered/Resolved]
  - Feeling abnormal [Recovered/Resolved]
  - Surgery [Recovered/Resolved]

NARRATIVE: CASE EVENT DATE: 2014
